FAERS Safety Report 19562074 (Version 2)
Quarter: 2021Q3

REPORT INFORMATION
  Report Type: Spontaneous
  Country: GB (occurrence: GB)
  Receive Date: 20210716
  Receipt Date: 20210729
  Transmission Date: 20211014
  Serious: Yes (Hospitalization, Disabling, Other)
  Sender: FDA-Public Use
  Company Number: GB-009507513-2107GBR001462

PATIENT
  Age: 6 Year
  Sex: Female

DRUGS (3)
  1. RALTEGRAVIR POTASSIUM [Suspect]
     Active Substance: RALTEGRAVIR POTASSIUM
     Indication: CONGENITAL HIV INFECTION
     Dosage: 100 MILLIGRAM, BD (BID)
     Route: 048
     Dates: start: 20191027, end: 20200122
  2. LAMIVUDINE. [Suspect]
     Active Substance: LAMIVUDINE
     Indication: CONGENITAL HIV INFECTION
     Dosage: 150 MILLIGRAM, OD (QD)
     Dates: end: 20200207
  3. ABACAVIR. [Concomitant]
     Active Substance: ABACAVIR
     Indication: CONGENITAL HIV INFECTION
     Dosage: 300 MILLIGRAM, OD (QD)
     Dates: end: 20200207

REACTIONS (2)
  - Hepatitis [Recovered/Resolved]
  - Infective myositis [Recovered/Resolved]
